FAERS Safety Report 11766050 (Version 1)
Quarter: 2015Q4

REPORT INFORMATION
  Report Type: Spontaneous
  Country: US (occurrence: US)
  Receive Date: 20151122
  Receipt Date: 20151122
  Transmission Date: 20160304
  Serious: Yes (Other)
  Sender: FDA-Public Use
  Company Number: US-BRISTOL-MYERS SQUIBB COMPANY-BMS-2015-079140

PATIENT
  Age: 86 Year
  Sex: Male

DRUGS (1)
  1. SPRYCEL [Suspect]
     Active Substance: DASATINIB
     Indication: GASTROINTESTINAL STROMAL TUMOUR
     Dosage: 70 MG, BID
     Route: 065
     Dates: start: 201510, end: 201510

REACTIONS (4)
  - Metastases to spine [Unknown]
  - Memory impairment [Unknown]
  - Dysuria [Unknown]
  - Off label use [Unknown]
